FAERS Safety Report 10279977 (Version 2)
Quarter: 2014Q3

REPORT INFORMATION
  Report Type: Report from Study
  Country: CA (occurrence: CA)
  Receive Date: 20140707
  Receipt Date: 20140707
  Transmission Date: 20150326
  Serious: Yes (Death, Hospitalization)
  Sender: FDA-Public Use
  Company Number: CA-JNJFOC-20140603132

PATIENT
  Age: 61 Year
  Sex: Male
  Weight: 108.86 kg

DRUGS (7)
  1. ROSUVASTATIN [Concomitant]
     Active Substance: ROSUVASTATIN
     Route: 048
  2. VITAMIN B12 [Concomitant]
     Active Substance: CYANOCOBALAMIN
     Route: 048
  3. BISOPROLOL [Concomitant]
     Active Substance: BISOPROLOL
     Route: 048
  4. ASA [Concomitant]
     Active Substance: ASPIRIN
     Route: 048
  5. REMICADE [Suspect]
     Active Substance: INFLIXIMAB
     Indication: CROHN^S DISEASE
     Dosage: 600 MG; 52 WEEKS
     Route: 042
     Dates: start: 20130327, end: 20140502
  6. ADALAT CC [Concomitant]
     Active Substance: NIFEDIPINE
     Route: 048
  7. DEXILANT [Concomitant]
     Active Substance: DEXLANSOPRAZOLE
     Route: 048

REACTIONS (3)
  - Hospitalisation [Unknown]
  - Pulseless electrical activity [Fatal]
  - Thrombosis [Fatal]

NARRATIVE: CASE EVENT DATE: 20140508
